FAERS Safety Report 20322528 (Version 1)
Quarter: 2022Q1

REPORT INFORMATION
  Report Type: Spontaneous
  Country: US (occurrence: None)
  Receive Date: 20220111
  Receipt Date: 20220111
  Transmission Date: 20220423
  Serious: Yes (Death, Life-Threatening)
  Sender: FDA-Public Use
  Company Number: None

PATIENT
  Age: 79 Year
  Sex: Male
  Weight: 117 kg

DRUGS (1)
  1. TOCILIZUMAB [Suspect]
     Active Substance: TOCILIZUMAB
     Dosage: FREQUENCY : ONCE;?
     Route: 042
     Dates: start: 20220105, end: 20220105

REACTIONS (2)
  - Acute kidney injury [None]
  - Infection [None]

NARRATIVE: CASE EVENT DATE: 20220106
